FAERS Safety Report 5141023-7 (Version None)
Quarter: 2006Q4

REPORT INFORMATION
  Report Type: 
  Country: None (occurrence: None)
  Receive Date: 20061026
  Receipt Date: 20061010
  Transmission Date: 20070319
  Serious: Yes (Life-Threatening)
  Sender: FDA-Public Use
  Company Number: 230485

PATIENT
  Age: 52 Year
  Sex: Male
  Weight: 85.2 kg

DRUGS (11)
  1. HERCEPTIN [Suspect]
     Indication: GASTRIC CANCER
     Dosage: 8 MG/KG, Q3W, INTRAVENOUS
     Route: 042
     Dates: start: 20060919
  2. CAPECITABINE (CAPECITABINE) [Suspect]
     Indication: GASTRIC CANCER
     Dosage: 1000 MG/M2
  3. CISPLATIN [Suspect]
     Indication: GASTRIC CANCER
     Dosage: 80 MG/M2, Q3W
     Dates: start: 20060919
  4. AMIKACIN [Concomitant]
  5. BROMHEXINE (BROMHEXINE HYDROCHLORIDE) [Concomitant]
  6. CEFOTAXIME SODIUM [Concomitant]
  7. METRONIDAZOLE [Concomitant]
  8. NUTRIFLEX (AMINO ACIDS) [Concomitant]
  9. MEPERIDINE HYDROCHLORIDE [Concomitant]
  10. PHAZYME (SIMETHICONE) [Concomitant]
  11. METOCLOPRAMIDE (METOCLOPRAMIDE HYDROCHLORIDE) [Concomitant]

REACTIONS (3)
  - DYSPNOEA [None]
  - GASTRIC PERFORATION [None]
  - METASTASES TO LIVER [None]
